FAERS Safety Report 6744820-7 (Version None)
Quarter: 2010Q2

REPORT INFORMATION
  Report Type: 
  Country: None (occurrence: None)
  Receive Date: 20100527
  Receipt Date: 20100301
  Transmission Date: 20101027
  Serious: No
  Sender: FDA-Public Use
  Company Number: US-BRISTOL-MYERS SQUIBB COMPANY-14998991

PATIENT
  Age: 58 Year
  Sex: Male

DRUGS (6)
  1. ONGLYZA [Suspect]
     Dates: start: 20100203, end: 20100224
  2. METFORMIN HYDROCHLORIDE [Concomitant]
  3. NIASPAN [Concomitant]
  4. METOPROLOL [Concomitant]
  5. GLIPIZIDE [Concomitant]
  6. LOSARTAN POTASSIUM [Concomitant]

REACTIONS (1)
  - COUGH [None]
